FAERS Safety Report 9166134 (Version 1)
Quarter: 2013Q1

REPORT INFORMATION
  Report Type: Report from Study
  Country: US (occurrence: US)
  Receive Date: 20130315
  Receipt Date: 20130315
  Transmission Date: 20140127
  Serious: Yes (Hospitalization)
  Sender: FDA-Public Use
  Company Number: US-ABBOTT-13P-163-1060093-00

PATIENT
  Age: 36 None
  Sex: Male
  Weight: 79.45 kg

DRUGS (4)
  1. HUMIRA [Suspect]
     Route: 058
     Dates: start: 201111, end: 201211
  2. HUMIRA [Suspect]
     Dates: start: 201212
  3. IMURAN [Concomitant]
     Indication: CROHN^S DISEASE
  4. MULTIVITAMIN [Concomitant]
     Indication: VITAMIN SUPPLEMENTATION

REACTIONS (5)
  - Enterocutaneous fistula [Not Recovered/Not Resolved]
  - Abdominal pain lower [Recovering/Resolving]
  - Pyrexia [Recovered/Resolved]
  - Heart rate increased [Recovered/Resolved]
  - Incorrect drug administration duration [Recovered/Resolved]
